FAERS Safety Report 7354583-2 (Version None)
Quarter: 2011Q1

REPORT INFORMATION
  Report Type: 
  Country: None (occurrence: None)
  Receive Date: 20110304
  Receipt Date: 20090618
  Transmission Date: 20110831
  Serious: Yes (Hospitalization)
  Sender: FDA-Public Use
  Company Number: UK-2009-00198

PATIENT
  Sex: Male

DRUGS (5)
  1. FLUOXETINE (40 MILLIGRAM) [Concomitant]
  2. SIMVASTATIN [Suspect]
     Indication: BLOOD CHOLESTEROL INCREASED
     Dosage: 80 MG (80 MG) ORAL
     Route: 048
     Dates: end: 20090518
  3. QUETIAPINE [Concomitant]
  4. METFORMIN [Concomitant]
  5. RISPERDONE [Suspect]
     Indication: SCHIZOPHRENIA
     Dosage: 25 MG (25 MG) INTRAMUSCULAR
     Route: 030
     Dates: start: 20090512, end: 20090518

REACTIONS (2)
  - RHABDOMYOLYSIS [None]
  - POTENTIATING DRUG INTERACTION [None]
